FAERS Safety Report 4690144-1 (Version None)
Quarter: 2005Q2

REPORT INFORMATION
  Report Type: 
  Country: None (occurrence: None)
  Receive Date: 20050613
  Receipt Date: 20050602
  Transmission Date: 20051028
  Serious: Yes (Hospitalization)
  Sender: FDA-Public Use
  Company Number: 2005-06-0098

PATIENT
  Sex: Female

DRUGS (2)
  1. ASMANEX TWISTHALER [Suspect]
     Indication: ASTHMA
     Dosage: 400MCG/QD INHALATION
     Route: 055
     Dates: start: 20050512, end: 20050513
  2. ANTIHISTAMINES (NOS) [Suspect]

REACTIONS (2)
  - RASH [None]
  - SWELLING FACE [None]
